FAERS Safety Report 6326402-4 (Version None)
Quarter: 2009Q3

REPORT INFORMATION
  Report Type: 
  Country: None (occurrence: None)
  Receive Date: 20090825
  Receipt Date: 20070327
  Transmission Date: 20100115
  Serious: Yes (Other)
  Sender: FDA-Public Use
  Company Number: US-ASTRAZENECA-2006UW03258

PATIENT
  Age: 516 Month
  Sex: Female
  Weight: 85.3 kg

DRUGS (19)
  1. SEROQUEL [Suspect]
     Indication: SLEEP DISORDER
     Route: 048
     Dates: start: 20030303, end: 20050624
  2. SEROQUEL [Suspect]
     Dosage: STRENGTH-25MG, 100MG
     Route: 048
     Dates: start: 20030303
  3. ZYPREXA [Concomitant]
     Dates: start: 20040101, end: 20050101
  4. XANAX [Concomitant]
     Dosage: STRENGTH-0.5MG, 0.25MG, 1MG, 2MG, 5MG DOSE-0.5MG-20MG
     Route: 048
     Dates: start: 19950125
  5. OXYCONTIN [Concomitant]
     Dosage: STRENGTH-40MG, 80MG DOSE-40MG-80MG
     Route: 048
     Dates: start: 20030604
  6. CELEBREX [Concomitant]
     Dates: start: 20060807
  7. LORCET-HD [Concomitant]
     Dosage: 10/650, ONE TO TWO, TWO TIMES A DAY, FOUR TIMES A DAY
     Route: 048
     Dates: start: 20010222
  8. FLUOXETINE [Concomitant]
     Dates: start: 20030225
  9. FUROSEMIDE [Concomitant]
     Dosage: STRENGTH-20MG, 40MG
     Dates: start: 20030227
  10. POTASSIUM CHLORIDE [Concomitant]
     Dosage: STRENGTH-10MEQ
     Dates: start: 20030324
  11. PREMARIN [Concomitant]
     Dates: start: 20010222
  12. LOVASTATIN [Concomitant]
     Dates: start: 20030707
  13. DILTIAZEM HCL [Concomitant]
     Dates: start: 20030610
  14. SINGULAIR [Concomitant]
     Dates: start: 20030610
  15. PREVACID [Concomitant]
     Dates: start: 20010222
  16. SUCRALFATE [Concomitant]
     Dates: start: 20030610
  17. THEOPHYLLINE [Concomitant]
     Dosage: STRENGTH-300MG, 600MG DOSE-300-600 MG DAILY
     Dates: start: 20010222
  18. DEPO-MEDROL [Concomitant]
     Dates: start: 20030804
  19. DIFLUCAN [Concomitant]
     Dates: start: 20030804

REACTIONS (10)
  - BLOOD CHOLESTEROL INCREASED [None]
  - CARDIO-RESPIRATORY ARREST [None]
  - CEREBRAL HAEMORRHAGE [None]
  - CONVULSION [None]
  - DIABETES MELLITUS [None]
  - DIABETIC COMPLICATION [None]
  - HEADACHE [None]
  - RESPIRATORY ARREST [None]
  - TYPE 2 DIABETES MELLITUS [None]
  - WEIGHT INCREASED [None]
